FAERS Safety Report 25273519 (Version 2)
Quarter: 2025Q2

REPORT INFORMATION
  Report Type: Report from Study
  Country: US (occurrence: US)
  Receive Date: 20250506
  Receipt Date: 20250529
  Transmission Date: 20250717
  Serious: Yes (Hospitalization, Other)
  Sender: OTSUKA
  Company Number: US-MMM-Otsuka-0DCYJLBV

PATIENT
  Age: 72 Year
  Sex: Male
  Weight: 69.4 kg

DRUGS (35)
  1. TOLVAPTAN [Suspect]
     Active Substance: TOLVAPTAN
     Indication: Congenital cystic kidney disease
     Dosage: 60 MG, QD
     Route: 065
     Dates: start: 20241206, end: 20250225
  2. TOLVAPTAN [Suspect]
     Active Substance: TOLVAPTAN
     Dosage: 30 MG, QD
     Route: 065
     Dates: start: 20241206, end: 20250225
  3. ZYLOPRIM [Concomitant]
     Active Substance: ALLOPURINOL
     Indication: Gout
     Dosage: 1 DF, DAILY
     Route: 048
     Dates: start: 20240927, end: 20250423
  4. TACROLIMUS [Concomitant]
     Active Substance: TACROLIMUS
     Indication: Product used for unknown indication
     Dosage: 4 MG, BID
     Route: 048
  5. MYCOPHENOLATE MOFETIL [Concomitant]
     Active Substance: MYCOPHENOLATE MOFETIL
     Indication: Leukopenia
     Dosage: 1000 MG, BID
     Route: 048
  6. MYCOPHENOLATE MOFETIL [Concomitant]
     Active Substance: MYCOPHENOLATE MOFETIL
     Dosage: 500 MG, BID (DOSE DECREASED)
     Route: 048
  7. TYLENOL [Concomitant]
     Active Substance: ACETAMINOPHEN
     Indication: Pain
     Route: 065
     Dates: start: 20250423, end: 20250512
  8. TYLENOL [Concomitant]
     Active Substance: ACETAMINOPHEN
     Dosage: 3000 MG, DAILY
     Route: 065
  9. LIPITOR [Concomitant]
     Active Substance: ATORVASTATIN CALCIUM
     Indication: Blood triglycerides
     Dosage: 80 MG, QD (1 TAB NIGHTLY)
     Route: 048
     Dates: start: 20250312, end: 20250505
  10. LIPITOR [Concomitant]
     Active Substance: ATORVASTATIN CALCIUM
     Dosage: 40 MG, DAILY (1 TAB
     Route: 048
     Dates: start: 20150628, end: 20250312
  11. COREG [Concomitant]
     Active Substance: CARVEDILOL
     Indication: Hypertension
     Dosage: 1 DF, BID (12.5 MG)
     Route: 048
     Dates: start: 20250423, end: 20250428
  12. COREG [Concomitant]
     Active Substance: CARVEDILOL
     Dosage: 1 DF, BID (25 MG)
     Route: 048
     Dates: start: 20241114, end: 20250423
  13. COLACE [Concomitant]
     Active Substance: DOCUSATE SODIUM
     Indication: Product used for unknown indication
     Dosage: 2 DF, BID
     Route: 048
     Dates: start: 20250424, end: 20250501
  14. CELLCEPT [Concomitant]
     Active Substance: MYCOPHENOLATE MOFETIL
     Indication: Product used for unknown indication
     Dosage: 2 DF, BID
     Route: 048
     Dates: start: 20250424
  15. PROCARDIA [Concomitant]
     Active Substance: NIFEDIPINE
     Indication: Hypertension
     Dosage: 1 DF, DAILY
     Route: 048
     Dates: start: 20250217, end: 20250312
  16. PROCARDIA [Concomitant]
     Active Substance: NIFEDIPINE
     Dosage: 1 DF, DAILY
     Route: 048
     Dates: start: 20250313, end: 20250505
  17. ROXICODONE [Concomitant]
     Active Substance: OXYCODONE HYDROCHLORIDE
     Indication: Pain
     Route: 048
     Dates: start: 20250425, end: 20250508
  18. PROTONIX [Concomitant]
     Active Substance: PANTOPRAZOLE SODIUM
     Indication: Product used for unknown indication
     Dosage: 1 DF, DAILY (EC)
     Route: 048
     Dates: start: 20250424
  19. GLYCOLAX [Concomitant]
     Active Substance: POLYETHYLENE GLYCOL 3350
     Indication: Product used for unknown indication
     Route: 048
     Dates: start: 20250424, end: 20250505
  20. DEXAMETHASONE [Concomitant]
     Active Substance: DEXAMETHASONE
     Indication: Renal transplant
     Dosage: 6 DF, DAILY
     Route: 048
     Dates: start: 20250424, end: 20250505
  21. DEXAMETHASONE [Concomitant]
     Active Substance: DEXAMETHASONE
     Dosage: 4 DF, DAILY
     Route: 048
     Dates: start: 20250424, end: 20250505
  22. SENOKOT [Concomitant]
     Active Substance: SENNOSIDES
     Indication: Product used for unknown indication
     Dosage: 2 DF, BID
     Route: 048
     Dates: start: 20250424, end: 20250505
  23. VIAGRA [Concomitant]
     Active Substance: SILDENAFIL CITRATE
     Indication: Product used for unknown indication
     Route: 065
     Dates: start: 20101004, end: 20250522
  24. BACTRIM [Concomitant]
     Active Substance: SULFAMETHOXAZOLE\TRIMETHOPRIM
     Indication: Pneumonia
     Dosage: 1 DF, DAILY
     Route: 048
     Dates: start: 20250422
  25. PROGRAF [Concomitant]
     Active Substance: TACROLIMUS
     Indication: Renal transplant
     Dosage: 4 DF, BID
     Route: 048
     Dates: start: 20250421, end: 20250428
  26. ZANAFLEX [Concomitant]
     Active Substance: TIZANIDINE HYDROCHLORIDE
     Indication: Muscle spasms
     Dosage: 1 DF, QD (NIGHTLY AS NEEDED)
     Route: 048
     Dates: start: 20241111, end: 20250505
  27. VALCYTE [Concomitant]
     Active Substance: VALGANCICLOVIR HYDROCHLORIDE
     Indication: Prophylaxis
     Dosage: 1 DF, DAILY
     Route: 048
     Dates: start: 20250423
  28. PRINIVIL [Concomitant]
     Active Substance: LISINOPRIL
     Indication: Product used for unknown indication
     Dosage: 1 DF, DAILY
     Route: 048
     Dates: start: 20250315
  29. HYDRODIURIL [Concomitant]
     Active Substance: HYDROCHLOROTHIAZIDE
     Indication: Product used for unknown indication
     Dosage: 1 DF, QD (EVERY MORNING)
     Route: 048
     Dates: start: 20230314, end: 20250411
  30. ASPIRIN [Concomitant]
     Active Substance: ASPIRIN
     Indication: Product used for unknown indication
     Dosage: 1 DF, DAILY
     Route: 048
     Dates: start: 20150731
  31. ASPIRIN [Concomitant]
     Active Substance: ASPIRIN
     Dosage: 1 DF, DAILY
     Route: 048
     Dates: start: 20250423
  32. CHOLECALCIFEROL [Concomitant]
     Active Substance: CHOLECALCIFEROL
     Indication: Product used for unknown indication
     Dosage: 1 DF, DAILY
     Route: 065
     Dates: start: 20150731
  33. CHOLECALCIFEROL [Concomitant]
     Active Substance: CHOLECALCIFEROL
     Dosage: 1 DF, DAILY
     Route: 048
     Dates: start: 20101012, end: 20250423
  34. INSULIN LISPRO [Concomitant]
     Active Substance: INSULIN LISPRO
     Indication: Product used for unknown indication
     Route: 065
     Dates: start: 20240131, end: 20250228
  35. INSULIN LISPRO [Concomitant]
     Active Substance: INSULIN LISPRO
     Route: 065
     Dates: start: 20250228, end: 20250512

REACTIONS (8)
  - Renal transplant [Recovered/Resolved]
  - Ureteral stent insertion [Unknown]
  - Blood parathyroid hormone increased [Unknown]
  - Haematocrit decreased [Unknown]
  - Haemoglobin decreased [Unknown]
  - Blood urea increased [Unknown]
  - Blood creatinine increased [Unknown]
  - Blood potassium increased [Unknown]

NARRATIVE: CASE EVENT DATE: 20250206
